FAERS Safety Report 23926743 (Version 1)
Quarter: 2024Q2

REPORT INFORMATION
  Report Type: Spontaneous
  Country: US (occurrence: None)
  Receive Date: 20240531
  Receipt Date: 20240531
  Transmission Date: 20240716
  Serious: Yes (Other)
  Sender: FDA-Public Use
  Company Number: None

PATIENT
  Age: 26 Year
  Sex: Male
  Weight: 70.2 kg

DRUGS (2)
  1. INVEGA SUSTENNA [Suspect]
     Active Substance: PALIPERIDONE PALMITATE
     Indication: Schizophrenia
     Dosage: OTHER FREQUENCY : ONCE EVERY 3 MONTH;?
     Route: 030
     Dates: start: 20240430, end: 20240521
  2. INVEGA SUSTENNA [Concomitant]
     Active Substance: PALIPERIDONE PALMITATE
     Dates: start: 20240430, end: 20240521

REACTIONS (3)
  - Pain in extremity [None]
  - Movement disorder [None]
  - Injection site pain [None]

NARRATIVE: CASE EVENT DATE: 20240430
